FAERS Safety Report 9356112 (Version 1)
Quarter: 2013Q2

REPORT INFORMATION
  Report Type: Spontaneous
  Country: FR (occurrence: FR)
  Receive Date: 20130619
  Receipt Date: 20130619
  Transmission Date: 20140414
  Serious: Yes (Hospitalization)
  Sender: FDA-Public Use
  Company Number: FR-PFIZER INC-2013174930

PATIENT
  Age: 47 Year
  Sex: Male

DRUGS (4)
  1. CARBOPLATIN [Suspect]
     Indication: MYCOSIS FUNGOIDES
     Dosage: CYCLIC
     Dates: start: 201102
  2. CYTARABINE [Suspect]
     Indication: MYCOSIS FUNGOIDES
     Dosage: CYCLIC
     Dates: start: 201102
  3. DEXAMETHASONE SODIUM PHOSPHATE [Suspect]
     Indication: MYCOSIS FUNGOIDES
     Dosage: CYCLIC
     Dates: start: 201102
  4. PEGFILGRASTIM [Suspect]
     Dosage: ON D4 OF CHEMOTHERAPY
     Dates: start: 201102

REACTIONS (2)
  - Febrile bone marrow aplasia [Recovered/Resolved]
  - Drug eruption [Recovering/Resolving]
